FAERS Safety Report 9201643 (Version 1)
Quarter: 2013Q2

REPORT INFORMATION
  Report Type: Spontaneous
  Country: FR (occurrence: FR)
  Receive Date: 20130401
  Receipt Date: 20130401
  Transmission Date: 20140414
  Serious: Yes (Other)
  Sender: FDA-Public Use
  Company Number: PHHY2013FR030104

PATIENT
  Age: 18 Month
  Sex: Male
  Weight: 14 kg

DRUGS (3)
  1. TOBI [Suspect]
     Indication: PSEUDOMONAS INFECTION
     Dosage: 2 DF,
     Dates: start: 201204, end: 20120630
  2. TOBI [Suspect]
     Dosage: 2 DF,
     Dates: start: 20120704, end: 20120707
  3. COLIMYCINE [Concomitant]
     Indication: PSEUDOMONAS INFECTION
     Dosage: UNK
     Dates: start: 201204

REACTIONS (1)
  - Rash erythematous [Recovered/Resolved]
